FAERS Safety Report 25024773 (Version 1)
Quarter: 2025Q1

REPORT INFORMATION
  Report Type: Other
  Country: CN (occurrence: CN)
  Receive Date: 20250228
  Receipt Date: 20250228
  Transmission Date: 20250409
  Serious: Yes (Death, Life-Threatening, Hospitalization, Other)
  Sender: VITRUVIAS THERAPEUTICS
  Company Number: CN-Vitruvias Therapeutics-2171996

PATIENT
  Age: 18 Year
  Sex: Female

DRUGS (2)
  1. PROPAFENONE HYDROCHLORIDE [Suspect]
     Active Substance: PROPAFENONE HYDROCHLORIDE
     Indication: Ventricular extrasystoles
  2. DIAZEPAM [Suspect]
     Active Substance: DIAZEPAM

REACTIONS (1)
  - Completed suicide [Fatal]
